FAERS Safety Report 6799554-X (Version None)
Quarter: 2010Q2

REPORT INFORMATION
  Report Type: 
  Country: None (occurrence: None)
  Receive Date: 20100624
  Receipt Date: 20100611
  Transmission Date: 20101027
  Serious: Yes (Death)
  Sender: FDA-Public Use
  Company Number: 2009-4327

PATIENT
  Sex: Male

DRUGS (1)
  1. APOKYN [Suspect]
     Indication: PARKINSON'S DISEASE
     Dates: start: 20080101, end: 20080811

REACTIONS (1)
  - DEATH [None]
